FAERS Safety Report 5976762-9 (Version None)
Quarter: 2008Q4

REPORT INFORMATION
  Report Type: 
  Country: None (occurrence: None)
  Receive Date: 20081201
  Receipt Date: 20081201
  Transmission Date: 20090506
  Serious: Yes (Other)
  Sender: FDA-Public Use
  Company Number: None

PATIENT
  Age: 19 Year
  Sex: Male
  Weight: 62.1428 kg

DRUGS (2)
  1. PROVIGIL [Suspect]
     Dosage: 50 MG
  2. PROVIGIL [Suspect]
     Indication: ATTENTION DEFICIT/HYPERACTIVITY DISORDER
     Dosage: 200MG DAILY P.O.
     Route: 048

REACTIONS (1)
  - TONIC CONVULSION [None]
